FAERS Safety Report 6101325-4 (Version None)
Quarter: 2009Q1

REPORT INFORMATION
  Report Type: 
  Country: None (occurrence: None)
  Receive Date: 20090227
  Receipt Date: 20090217
  Transmission Date: 20090719
  Serious: Yes (Hospitalization)
  Sender: FDA-Public Use
  Company Number: 238590J08USA

PATIENT
  Age: 47 Year
  Sex: Female
  Weight: 95 kg

DRUGS (12)
  1. REBIF [Suspect]
     Indication: MULTIPLE SCLEROSIS
     Dosage: 44 MCG, 3 IN 1 WEEKS, SUBCUTANEOUS
     Route: 058
     Dates: start: 20040308
  2. . [Concomitant]
  3. CYMBALTA [Concomitant]
  4. ARICEPT [Concomitant]
  5. LIPITOR [Concomitant]
  6. LUNESTA [Concomitant]
  7. CONCERTA [Concomitant]
  8. ADVAIR HFA [Concomitant]
  9. SINGULAIR (MONTELUKAST/01362601/) [Concomitant]
  10. NEXIUM [Concomitant]
  11. VERAPAMIL (VERAPAMIL/00014301/) [Concomitant]
  12. TRIAMTERENE [Concomitant]

REACTIONS (9)
  - ASPIRATION [None]
  - CONDITION AGGRAVATED [None]
  - CYSTOCELE [None]
  - DEVICE MALFUNCTION [None]
  - GASTROINTESTINAL DISORDER [None]
  - OEDEMA PERIPHERAL [None]
  - PULMONARY OEDEMA [None]
  - RECTOCELE [None]
  - URINARY INCONTINENCE [None]
